FAERS Safety Report 8307689 (Version 12)
Quarter: 2015Q2

REPORT INFORMATION
  Report Type: Report from Study
  Country: RU (occurrence: RU)
  Receive Date: 20111222
  Receipt Date: 20150401
  Transmission Date: 20150821
  Serious: Yes (Hospitalization)
  Sender: FDA-Public Use
  Company Number: RU-ROCHE-1022510

PATIENT
  Age: 42 Year
  Sex: Male
  Weight: 76 kg

DRUGS (2)
  1. VEMURAFENIB [Suspect]
     Active Substance: VEMURAFENIB
     Dosage: RESTARTED WITH REDUCED DOSE
     Route: 048
     Dates: start: 20111228
  2. VEMURAFENIB [Suspect]
     Active Substance: VEMURAFENIB
     Indication: METASTATIC MALIGNANT MELANOMA
     Dosage: DATE OF LAST DOSE PRIOR TO SAE:14/DEC/2011
     Route: 048
     Dates: start: 20111129, end: 20111214

REACTIONS (1)
  - Pulmonary embolism [Recovered/Resolved]

NARRATIVE: CASE EVENT DATE: 20111214
